FAERS Safety Report 13341780 (Version 1)
Quarter: 2017Q1

REPORT INFORMATION
  Report Type: Spontaneous
  Country: US (occurrence: US)
  Receive Date: 20170316
  Receipt Date: 20170316
  Transmission Date: 20170428
  Serious: No
  Sender: FDA-Public Use
  Company Number: US-ROCHE-1877789

PATIENT
  Age: 94 Year
  Sex: Female
  Weight: 59.02 kg

DRUGS (1)
  1. ERIVEDGE [Suspect]
     Active Substance: VISMODEGIB
     Indication: SQUAMOUS CELL CARCINOMA OF SKIN
     Route: 065
     Dates: start: 20160801, end: 20161101

REACTIONS (8)
  - Hiatus hernia [Not Recovered/Not Resolved]
  - Alopecia [Not Recovered/Not Resolved]
  - Decreased appetite [Not Recovered/Not Resolved]
  - Ill-defined disorder [Not Recovered/Not Resolved]
  - Ageusia [Not Recovered/Not Resolved]
  - Fluid intake reduced [Not Recovered/Not Resolved]
  - Dementia [Not Recovered/Not Resolved]
  - Gastrointestinal stenosis [Not Recovered/Not Resolved]
